FAERS Safety Report 6546390-5 (Version None)
Quarter: 2010Q1

REPORT INFORMATION
  Report Type: 
  Country: None (occurrence: None)
  Receive Date: 20100119
  Receipt Date: 20100104
  Transmission Date: 20100710
  Serious: Yes (Death, Hospitalization, Disabling)
  Sender: FDA-Public Use
  Company Number: 2009AC000036

PATIENT
  Age: 74 Year
  Sex: Female
  Weight: 74.3899 kg

DRUGS (42)
  1. DIGOXIN [Suspect]
     Indication: ATRIAL FIBRILLATION
     Dosage: 0.25 MG;QD;PO
     Route: 048
  2. ZITHROMAX [Concomitant]
  3. LASIX [Concomitant]
  4. PLAVIX [Concomitant]
  5. PREMARIN [Concomitant]
  6. XANAX [Concomitant]
  7. ARMOUR [Concomitant]
  8. THYROID TAB [Concomitant]
  9. VICODIN [Concomitant]
  10. POTASSIUM [Concomitant]
  11. ATENOLOL [Concomitant]
  12. HYDROCODONE [Concomitant]
  13. PROTONIX [Concomitant]
  14. SYNTHROID [Concomitant]
  15. EPOGEN [Concomitant]
  16. ASCORBIC ACID [Concomitant]
  17. FOLIC ACID [Concomitant]
  18. VITAMIN B-12 [Concomitant]
  19. AVELOX [Concomitant]
  20. AMIODARONE [Concomitant]
  21. NITROGLYCERIN [Concomitant]
  22. ATIVAN [Concomitant]
  23. HALDOL [Concomitant]
  24. ALPRAZOLAM [Concomitant]
  25. CLOPIDOGREL [Concomitant]
  26. SPIRONOLACTONE [Concomitant]
  27. ALTACE [Concomitant]
  28. PLAVIX [Concomitant]
  29. ARMOR TYROID [Concomitant]
  30. LASIX [Concomitant]
  31. PREMARIN [Concomitant]
  32. ATENOLOL [Concomitant]
  33. POTASSIUM CHLORIDE [Concomitant]
  34. XANAX [Concomitant]
  35. ALTACE [Concomitant]
  36. OXYGEN [Concomitant]
  37. VICODIN [Concomitant]
  38. ALDACTONE [Concomitant]
  39. DEPAKOTE [Concomitant]
  40. ZOLOFT [Concomitant]
  41. PREVACID [Concomitant]
  42. MORPHINE [Concomitant]

REACTIONS (56)
  - ABASIA [None]
  - ABDOMINAL PAIN [None]
  - ANAEMIA [None]
  - ARTERIAL THROMBOSIS [None]
  - ASTHENIA [None]
  - ATELECTASIS [None]
  - ATRIAL FIBRILLATION [None]
  - ATRIOVENTRICULAR BLOCK COMPLETE [None]
  - BLOOD CREATINE PHOSPHOKINASE INCREASED [None]
  - CARDIAC ARREST [None]
  - CARDIAC FAILURE [None]
  - CARDIOACTIVE DRUG LEVEL INCREASED [None]
  - CARDIOMEGALY [None]
  - CEREBROVASCULAR ACCIDENT [None]
  - COAGULOPATHY [None]
  - CONVULSION [None]
  - COUGH [None]
  - DEEP VEIN THROMBOSIS [None]
  - DIZZINESS [None]
  - DYSPNOEA [None]
  - EROSIVE OESOPHAGITIS [None]
  - FATIGUE [None]
  - FEELING ABNORMAL [None]
  - GASTRIC ULCER [None]
  - GASTROINTESTINAL HAEMORRHAGE [None]
  - HEART RATE DECREASED [None]
  - HYPERKALAEMIA [None]
  - HYPOTENSION [None]
  - HYPOXIA [None]
  - INJURY [None]
  - INTERNATIONAL NORMALISED RATIO INCREASED [None]
  - INTESTINAL ISCHAEMIA [None]
  - IRRITABILITY [None]
  - LIVEDO RETICULARIS [None]
  - NASOPHARYNGITIS [None]
  - NAUSEA [None]
  - OEDEMA PERIPHERAL [None]
  - OROPHARYNGEAL PAIN [None]
  - PAIN IN EXTREMITY [None]
  - PALLOR [None]
  - PERIPHERAL COLDNESS [None]
  - PLEURAL EFFUSION [None]
  - POLYCYTHAEMIA [None]
  - PULSE ABSENT [None]
  - RECTAL HAEMORRHAGE [None]
  - RENAL FAILURE ACUTE [None]
  - RHABDOMYOLYSIS [None]
  - SPEECH DISORDER [None]
  - SPINAL COLUMN STENOSIS [None]
  - TENDERNESS [None]
  - THERAPEUTIC AGENT TOXICITY [None]
  - THROMBOCYTOPENIA [None]
  - UNEVALUABLE EVENT [None]
  - URINARY TRACT INFECTION [None]
  - VERTIGO [None]
  - VOMITING [None]
